FAERS Safety Report 7521797-8 (Version None)
Quarter: 2011Q2

REPORT INFORMATION
  Report Type: 
  Country: None (occurrence: None)
  Receive Date: 20110603
  Receipt Date: 20110601
  Transmission Date: 20111010
  Serious: Yes (Death)
  Sender: FDA-Public Use
  Company Number: PHHY2010MX16949

PATIENT
  Sex: Male

DRUGS (5)
  1. EXELON [Suspect]
     Indication: DEMENTIA ALZHEIMER'S TYPE
     Dosage: 9.5MG/24 HOURS, DAILY
     Route: 062
     Dates: start: 20090701
  2. AKATINOL [Concomitant]
     Indication: DEMENTIA ALZHEIMER'S TYPE
     Dosage: 3 TABLETS PER DAY
  3. LEUPROLIDE ACETATE [Concomitant]
  4. CASODEX [Concomitant]
  5. SIMVASTATIN [Concomitant]

REACTIONS (4)
  - APPLICATION SITE ERYTHEMA [None]
  - CARDIAC ARREST [None]
  - PNEUMONIA ASPIRATION [None]
  - HYPERSENSITIVITY [None]
